FAERS Safety Report 16010372 (Version 1)
Quarter: 2019Q1

REPORT INFORMATION
  Report Type: Spontaneous
  Country: SE (occurrence: SE)
  Receive Date: 20190227
  Receipt Date: 20190227
  Transmission Date: 20190418
  Serious: Yes (Other)
  Sender: FDA-Public Use
  Company Number: SE-TEVA-2019-SE-1015506

PATIENT
  Age: 36 Year
  Sex: Female

DRUGS (2)
  1. CANESTEN 500 MG + 1 % VAGINALTABLETT OCH KR?M [Concomitant]
  2. ALFUZOSIN [Suspect]
     Active Substance: ALFUZOSIN
     Indication: URINARY RETENTION
     Dosage: 10 MILLIGRAM DAILY;
     Route: 048
     Dates: start: 201805, end: 201806

REACTIONS (2)
  - Maternal exposure during pregnancy [Recovered/Resolved]
  - Abortion spontaneous [Recovered/Resolved]

NARRATIVE: CASE EVENT DATE: 201806
